FAERS Safety Report 13351008 (Version 3)
Quarter: 2017Q1

REPORT INFORMATION
  Report Type: Spontaneous
  Country: US (occurrence: US)
  Receive Date: 20170320
  Receipt Date: 20170328
  Transmission Date: 20170429
  Serious: Yes (Other)
  Sender: FDA-Public Use
  Company Number: US-PFIZER INC-2017117479

PATIENT
  Age: 41 Year
  Sex: Female
  Weight: 79.37 kg

DRUGS (1)
  1. CYTARABINE. [Suspect]
     Active Substance: CYTARABINE
     Indication: NEOPLASM MALIGNANT
     Dosage: 100MG (5ML), UNK
     Route: 037
     Dates: start: 20170308, end: 20170308

REACTIONS (5)
  - Headache [Recovered/Resolved]
  - CSF protein abnormal [Recovered/Resolved]
  - Meningitis [Unknown]
  - CSF glucose abnormal [Recovered/Resolved]
  - Pyrexia [Recovered/Resolved]
